FAERS Safety Report 5750999-6 (Version None)
Quarter: 2008Q2

REPORT INFORMATION
  Report Type: 
  Country: None (occurrence: None)
  Receive Date: 20080528
  Receipt Date: 20080516
  Transmission Date: 20081010
  Serious: Yes (Other)
  Sender: FDA-Public Use
  Company Number: HQWYE414126JUL04

PATIENT
  Sex: Female
  Weight: 68.55 kg

DRUGS (1)
  1. PREMPRO [Suspect]
     Indication: MENOPAUSAL SYMPTOMS
     Dosage: UNKNOWN
     Route: 048
     Dates: start: 19961001, end: 20000801

REACTIONS (1)
  - BREAST CANCER METASTATIC [None]
